FAERS Safety Report 5044370-2 (Version None)
Quarter: 2006Q3

REPORT INFORMATION
  Report Type: 
  Country: None (occurrence: None)
  Receive Date: 20060706
  Receipt Date: 20060613
  Transmission Date: 20061208
  Serious: Yes (Other)
  Sender: FDA-Public Use
  Company Number: PHEH2006US07772

PATIENT
  Age: 39 Year
  Sex: Female

DRUGS (7)
  1. ZOMETA [Suspect]
     Indication: METASTASES TO BONE
     Dosage: 4MG QMO
     Dates: start: 20020307
  2. NAVELBINE [Concomitant]
     Dates: start: 20030605, end: 20030605
  3. XELODA [Concomitant]
     Dates: start: 20030605, end: 20030605
  4. XELODA [Concomitant]
     Dates: start: 20030624, end: 20040116
  5. GEMZAR [Concomitant]
     Dosage: 1000MG Q2WK
     Dates: start: 20040409, end: 20050311
  6. CISPLATIN [Concomitant]
     Dosage: 40MG Q2WK
     Dates: start: 20040409, end: 20050311
  7. TAXOTERE [Concomitant]
     Dates: start: 20020814, end: 20050507

REACTIONS (5)
  - BONE DISORDER [None]
  - DRUG DOSE OMISSION [None]
  - OSTEONECROSIS [None]
  - PAIN IN JAW [None]
  - TOOTH LOSS [None]
